FAERS Safety Report 7775282-9 (Version None)
Quarter: 2011Q3

REPORT INFORMATION
  Report Type: 
  Country: None (occurrence: None)
  Receive Date: 20110921
  Receipt Date: 20110909
  Transmission Date: 20111222
  Serious: Yes (Other)
  Sender: FDA-Public Use
  Company Number: 2011SP042402

PATIENT
  Age: 55 Year
  Sex: Female
  Weight: 70 kg

DRUGS (1)
  1. GRISEOFULVIN [Suspect]
     Indication: ANTIFUNGAL TREATMENT
     Dosage: QD;PO
     Route: 048
     Dates: start: 20110601, end: 20110827

REACTIONS (3)
  - INAPPROPRIATE SCHEDULE OF DRUG ADMINISTRATION [None]
  - SWELLING [None]
  - LIVER DISORDER [None]
